FAERS Safety Report 17187587 (Version 1)
Quarter: 2019Q4

REPORT INFORMATION
  Report Type: Report from Study
  Country: US (occurrence: US)
  Receive Date: 20191220
  Receipt Date: 20191220
  Transmission Date: 20200122
  Serious: No
  Sender: FDA-Public Use
  Company Number: NVSC2019US044533

PATIENT
  Sex: Female

DRUGS (1)
  1. GLATOPA [Suspect]
     Active Substance: GLATIRAMER ACETATE
     Indication: MULTIPLE SCLEROSIS
     Dosage: UNK, QD
     Route: 058

REACTIONS (5)
  - Dyspnoea [Unknown]
  - Asthenia [Unknown]
  - Chest discomfort [Unknown]
  - Flushing [Unknown]
  - Muscle spasms [Unknown]
